FAERS Safety Report 6491045-9 (Version None)
Quarter: 2009Q4

REPORT INFORMATION
  Report Type: 
  Country: None (occurrence: None)
  Receive Date: 20091211
  Receipt Date: 20091202
  Transmission Date: 20100525
  Serious: Yes (Hospitalization)
  Sender: FDA-Public Use
  Company Number: JP-NOVOPROD-301601

PATIENT
  Sex: Male

DRUGS (3)
  1. NOVOLIN R [Suspect]
     Indication: TYPE 2 DIABETES MELLITUS
     Dosage: 36 IU, QD (18+18)
  2. NOVOLIN R [Suspect]
     Dosage: 300 IU, SINGLE
  3. NOVOLIN R [Suspect]
     Dosage: 36 IU, QD (18+18)

REACTIONS (4)
  - DEPRESSION [None]
  - HYPOGLYCAEMIC UNCONSCIOUSNESS [None]
  - INTENTIONAL OVERDOSE [None]
  - SUICIDE ATTEMPT [None]
